FAERS Safety Report 6811138-3 (Version None)
Quarter: 2010Q2

REPORT INFORMATION
  Report Type: 
  Country: None (occurrence: None)
  Receive Date: 20100630
  Receipt Date: 20090403
  Transmission Date: 20101027
  Serious: No
  Sender: FDA-Public Use
  Company Number: US-PFIZER INC-2009177533

PATIENT
  Sex: Female

DRUGS (1)
  1. ESTRING [Suspect]

REACTIONS (4)
  - ABDOMINAL PAIN UPPER [None]
  - MIGRAINE [None]
  - NAUSEA [None]
  - PYREXIA [None]
